FAERS Safety Report 13997435 (Version 2)
Quarter: 2017Q4

REPORT INFORMATION
  Report Type: Spontaneous
  Country: US (occurrence: US)
  Receive Date: 20170921
  Receipt Date: 20171005
  Transmission Date: 20180321
  Serious: Yes (Other)
  Sender: FDA-Public Use
  Company Number: US-LUPIN PHARMACEUTICALS INC.-2017-05474

PATIENT
  Age: 78 Year
  Sex: Male
  Weight: 74.83 kg

DRUGS (3)
  1. SIMVASTATIN. [Concomitant]
     Active Substance: SIMVASTATIN
     Indication: HYPERCHOLESTEROLAEMIA
     Dosage: 20 MG, QD
     Route: 048
  2. ASPIRIN                            /00002701/ [Concomitant]
     Active Substance: ASPIRIN
     Indication: ANTIPLATELET THERAPY
     Dosage: 81 MG, QD
     Route: 048
  3. GAVILYTE - N [Suspect]
     Active Substance: POLYETHYLENE GLYCOL 3350\POTASSIUM CHLORIDE\SODIUM BICARBONATE\SODIUM CHLORIDE
     Indication: BOWEL PREPARATION
     Dosage: AT 5 PM ON 05-SEP-2017 FOR A PROCEDURE ON 06-SEP-2017
     Route: 048
     Dates: start: 20170905, end: 20170906

REACTIONS (6)
  - Facial paralysis [Recovered/Resolved]
  - Migraine [Recovered/Resolved]
  - Dizziness [Recovered/Resolved]
  - Aphasia [Recovered/Resolved]
  - Seizure [Recovered/Resolved]
  - Hemiparesis [Recovered/Resolved]

NARRATIVE: CASE EVENT DATE: 20170906
